FAERS Safety Report 5271200-6 (Version None)
Quarter: 2007Q1

REPORT INFORMATION
  Report Type: 
  Country: None (occurrence: None)
  Receive Date: 20070321
  Receipt Date: 20070307
  Transmission Date: 20070707
  Serious: No
  Sender: FDA-Public Use
  Company Number: US-JNJFOC-20061204573

PATIENT
  Age: 14 Year
  Sex: Female
  Weight: 52.16 kg

DRUGS (7)
  1. ORTHO EVRA [Suspect]
     Indication: CONTRACEPTION
     Route: 062
  2. IBUPROFEN [Concomitant]
  3. HYDROXYZINE HCL [Concomitant]
  4. PREVACID [Concomitant]
  5. LORATADINE [Concomitant]
  6. PHENERGAN HCL [Concomitant]
  7. NAPRELAN [Concomitant]

REACTIONS (2)
  - PAIN IN EXTREMITY [None]
  - VAGINAL HAEMORRHAGE [None]
